FAERS Safety Report 9184940 (Version 1)
Quarter: 2013Q1

REPORT INFORMATION
  Report Type: Spontaneous
  Country: CA (occurrence: CA)
  Receive Date: 20130325
  Receipt Date: 20130325
  Transmission Date: 20140127
  Serious: Yes (Hospitalization, Other)
  Sender: FDA-Public Use
  Company Number: CA-INCYTE CORPORATION-2013IN000576

PATIENT
  Age: 61 Year
  Sex: Male

DRUGS (2)
  1. JAKAVI [Suspect]
     Indication: MYELOFIBROSIS
     Dosage: 15 MG, BID
     Route: 048
     Dates: start: 201210
  2. ALLOPURINOL [Concomitant]

REACTIONS (2)
  - White blood cell count increased [Unknown]
  - Disease progression [Unknown]
